FAERS Safety Report 23890172 (Version 1)
Quarter: 2024Q2

REPORT INFORMATION
  Report Type: Spontaneous
  Country: US (occurrence: US)
  Receive Date: 20240523
  Receipt Date: 20240523
  Transmission Date: 20240716
  Serious: No
  Sender: FDA-Public Use
  Company Number: US-BAYER-2024A073675

PATIENT

DRUGS (2)
  1. CLARITIN-D 12 HOUR [Suspect]
     Active Substance: LORATADINE\PSEUDOEPHEDRINE SULFATE
  2. CLARITIN [Suspect]
     Active Substance: LORATADINE

REACTIONS (3)
  - Incorrect product administration duration [Unknown]
  - Blood pressure increased [Unknown]
  - Drug ineffective [None]
